FAERS Safety Report 6142945-0 (Version None)
Quarter: 2009Q2

REPORT INFORMATION
  Report Type: 
  Country: None (occurrence: None)
  Receive Date: 20090401
  Receipt Date: 20090324
  Transmission Date: 20091009
  Serious: Yes (Other)
  Sender: FDA-Public Use
  Company Number: 2009S1000109

PATIENT

DRUGS (1)
  1. CUBICIN [Suspect]

REACTIONS (2)
  - ACUTE HEPATIC FAILURE [None]
  - RENAL FAILURE ACUTE [None]
